FAERS Safety Report 18654887 (Version 1)
Quarter: 2020Q4

REPORT INFORMATION
  Report Type: Spontaneous
  Country: US (occurrence: US)
  Receive Date: 20201223
  Receipt Date: 20201223
  Transmission Date: 20210114
  Serious: Yes (Other)
  Sender: FDA-Public Use
  Company Number: None

PATIENT
  Age: 50 Year
  Sex: Female
  Weight: 110 kg

DRUGS (1)
  1. CASIRIVIMAB/IMDEVIMAB [Suspect]
     Active Substance: CASIRIVIMAB\IMDEVIMAB
     Dosage: ?          OTHER FREQUENCY:ONCE;?
     Route: 042
     Dates: start: 20201218, end: 20201218

REACTIONS (7)
  - Hypoaesthesia [None]
  - Anxiety [None]
  - Abdominal pain [None]
  - Back pain [None]
  - Infusion related reaction [None]
  - Palpitations [None]
  - Musculoskeletal stiffness [None]

NARRATIVE: CASE EVENT DATE: 20201218
